FAERS Safety Report 6825613-9 (Version None)
Quarter: 2010Q3

REPORT INFORMATION
  Report Type: 
  Country: None (occurrence: None)
  Receive Date: 20100708
  Receipt Date: 20070302
  Transmission Date: 20110219
  Serious: No
  Sender: FDA-Public Use
  Company Number: US-PFIZER INC-2006155886

PATIENT
  Sex: Female
  Weight: 74.84 kg

DRUGS (7)
  1. CHANTIX [Suspect]
     Indication: SMOKING CESSATION THERAPY
     Route: 048
     Dates: start: 20061128
  2. COUMADIN [Concomitant]
     Indication: CEREBROVASCULAR ACCIDENT
  3. METFORMIN HCL [Concomitant]
     Indication: DIABETES MELLITUS
  4. LISINOPRIL [Concomitant]
  5. ENZYME PREPARATIONS [Concomitant]
  6. ADVAIR DISKUS 100/50 [Concomitant]
  7. LUNESTA [Concomitant]
     Indication: SLEEP DISORDER

REACTIONS (5)
  - DECREASED APPETITE [None]
  - FOOD AVERSION [None]
  - MALAISE [None]
  - NAUSEA [None]
  - WEIGHT DECREASED [None]
